FAERS Safety Report 7254851-9 (Version None)
Quarter: 2011Q1

REPORT INFORMATION
  Report Type: 
  Country: None (occurrence: None)
  Receive Date: 20110129
  Receipt Date: 20100402
  Transmission Date: 20110831
  Serious: No
  Sender: FDA-Public Use
  Company Number: US-ABBOTT-10P-163-0636151-00

PATIENT
  Sex: Female
  Weight: 79.45 kg

DRUGS (8)
  1. ATENOLOL [Concomitant]
     Indication: HYPERTENSION
  2. CELEXA [Concomitant]
     Indication: DEPRESSION
  3. SUDAFED 12 HOUR [Concomitant]
     Indication: SINUS DISORDER
  4. NASACORT [Concomitant]
     Indication: SINUS DISORDER
  5. RANTIDINE [Concomitant]
     Indication: GASTROOESOPHAGEAL REFLUX DISEASE
  6. HUMIRA [Suspect]
     Indication: PSORIATIC ARTHROPATHY
     Dates: start: 20091208
  7. DIAZIDE HCTZ [Concomitant]
     Indication: HYPERTENSION
  8. GABAPENTIN [Concomitant]
     Indication: NEUROPATHY PERIPHERAL

REACTIONS (2)
  - PSORIASIS [None]
  - FATIGUE [None]
